FAERS Safety Report 10254732 (Version 1)
Quarter: 2014Q2

REPORT INFORMATION
  Report Type: Spontaneous
  Country: US (occurrence: None)
  Receive Date: 20140620
  Receipt Date: 20140620
  Transmission Date: 20141212
  Serious: Yes (Life-Threatening, Disabling)
  Sender: FDA-Public Use
  Company Number: None

PATIENT
  Age: 32 Year
  Sex: Female
  Weight: 68.04 kg

DRUGS (1)
  1. PAXIL [Suspect]
     Indication: MAJOR DEPRESSION
     Dosage: 1XS DAILY  ONCE DAILY TAKEN BY MOUTH
     Route: 048
     Dates: start: 20040101, end: 20140619

REACTIONS (14)
  - Agitation [None]
  - Anxiety [None]
  - Drug dose omission [None]
  - Ataxia [None]
  - Crying [None]
  - Paranoia [None]
  - Fear [None]
  - Delusion [None]
  - Communication disorder [None]
  - Aggression [None]
  - Impaired work ability [None]
  - Suicide attempt [None]
  - Psychotic disorder [None]
  - Scar [None]
